FAERS Safety Report 6304839-7 (Version None)
Quarter: 2009Q3

REPORT INFORMATION
  Report Type: 
  Country: None (occurrence: None)
  Receive Date: 20090811
  Receipt Date: 20090403
  Transmission Date: 20100115
  Serious: Yes (Death, Hospitalization)
  Sender: FDA-Public Use
  Company Number: PHHO2009CA03127

PATIENT
  Sex: Male
  Weight: 57.2 kg

DRUGS (2)
  1. RAD 666 RAD++CMAS [Suspect]
     Indication: NON-SMALL CELL LUNG CANCER
     Dosage: 5 MG
     Route: 048
     Dates: start: 20090218
  2. TARCEVA [Concomitant]
     Indication: NON-SMALL CELL LUNG CANCER
     Dosage: 150 MG
     Route: 048
     Dates: start: 20090218

REACTIONS (16)
  - ACUTE RESPIRATORY FAILURE [None]
  - ANAEMIA [None]
  - COLLAPSE OF LUNG [None]
  - CONFUSIONAL STATE [None]
  - COUGH [None]
  - DEHYDRATION [None]
  - DYSPNOEA [None]
  - EMPHYSEMA [None]
  - HAEMOPTYSIS [None]
  - HYPOTENSION [None]
  - INTERSTITIAL LUNG DISEASE [None]
  - LUNG CONSOLIDATION [None]
  - MALIGNANT NEOPLASM PROGRESSION [None]
  - PNEUMONIA [None]
  - PULMONARY CONGESTION [None]
  - TRAUMATIC LUNG INJURY [None]
